FAERS Safety Report 11152778 (Version 2)
Quarter: 2015Q2

REPORT INFORMATION
  Report Type: Report from Study
  Country: GB (occurrence: GB)
  Receive Date: 20150601
  Receipt Date: 20150610
  Transmission Date: 20150821
  Serious: Yes (Hospitalization)
  Sender: FDA-Public Use
  Company Number: GB-JNJFOC-20150515474

PATIENT
  Age: 14 Year
  Sex: Male
  Weight: 55.5 kg

DRUGS (2)
  1. AZATHIOPRINE. [Suspect]
     Active Substance: AZATHIOPRINE
     Indication: PRODUCT USED FOR UNKNOWN INDICATION
     Route: 065
  2. REMICADE [Suspect]
     Active Substance: INFLIXIMAB
     Indication: CROHN^S DISEASE
     Route: 042
     Dates: start: 20120914

REACTIONS (4)
  - Skin exfoliation [Unknown]
  - Crohn^s disease [Recovered/Resolved with Sequelae]
  - Skin lesion [Unknown]
  - Varicella [Recovering/Resolving]

NARRATIVE: CASE EVENT DATE: 201503
